FAERS Safety Report 9684332 (Version 5)
Quarter: 2014Q1

REPORT INFORMATION
  Report Type: Report from Study
  Country: US (occurrence: US)
  Receive Date: 20131112
  Receipt Date: 20140228
  Transmission Date: 20141002
  Serious: Yes (Hospitalization, Other)
  Sender: FDA-Public Use
  Company Number: US-ABBVIE-13P-163-1151563-00

PATIENT
  Age: 47 Year
  Sex: Female
  Weight: 59.47 kg

DRUGS (14)
  1. HUMIRA [Suspect]
     Indication: CROHN^S DISEASE
     Dosage: BASELINE
     Route: 058
     Dates: start: 20081009, end: 20081009
  2. HUMIRA [Suspect]
     Dosage: WEEK 2
     Route: 058
  3. HUMIRA [Suspect]
     Route: 058
  4. HUMIRA [Suspect]
     Route: 058
     Dates: start: 20090915, end: 20130415
  5. METHOTREXATE [Concomitant]
     Indication: CROHN^S DISEASE
     Dosage: .6 ML/15 MG
  6. METHOTREXATE [Concomitant]
     Dates: start: 20081009, end: 20090915
  7. EXTENDRYL [Concomitant]
     Indication: SEASONAL ALLERGY
     Dosage: D
     Dates: start: 200701
  8. ERGOCALCIFEROL [Concomitant]
     Indication: VITAMIN D DECREASED
     Dates: start: 20100114
  9. TELMISARTAN [Concomitant]
     Indication: HYPERTENSION
     Dates: start: 201007, end: 20130211
  10. PENTASA [Concomitant]
     Indication: CROHN^S DISEASE
     Dates: start: 1986
  11. DEXAMETHASONE [Concomitant]
     Indication: PRODUCT USED FOR UNKNOWN INDICATION
     Dosage: 0.5MG/5 ML
     Dates: start: 20130414, end: 20130414
  12. PHENERGAN [Concomitant]
     Indication: NAUSEA
     Dosage: QD AS NEEDED
     Dates: start: 20130414, end: 20130414
  13. PHENERGAN [Concomitant]
     Indication: VOMITING
  14. VITAMIN B-12 [Concomitant]
     Indication: VITAMIN B12 DEFICIENCY
     Dates: start: 20110712

REACTIONS (1)
  - Small intestinal obstruction [Recovered/Resolved]
